FAERS Safety Report 11349293 (Version 1)
Quarter: 2015Q3

REPORT INFORMATION
  Report Type: Spontaneous
  Country: US (occurrence: None)
  Receive Date: 20150630
  Receipt Date: 20150630
  Transmission Date: 20151125
  Serious: Yes (Other)
  Sender: FDA-Public Use
  Company Number: 2015_000577

PATIENT
  Sex: Female

DRUGS (2)
  1. INVEGA SUNSTENNA (PALIPERIDONE PALMITATE) [Concomitant]
  2. ABILIFY MAINTENA [Suspect]
     Active Substance: ARIPIPRAZOLE
     Indication: SCHIZOPHRENIA
     Route: 028
     Dates: start: 2014

REACTIONS (1)
  - Akathisia [None]
